FAERS Safety Report 10429629 (Version 1)
Quarter: 2014Q3

REPORT INFORMATION
  Report Type: Spontaneous
  Country: US (occurrence: None)
  Receive Date: 20140801
  Receipt Date: 20140801
  Transmission Date: 20150326
  Serious: Yes (Hospitalization)
  Sender: FDA-Public Use
  Company Number: GTI002062

PATIENT
  Age: 34 Year
  Sex: Female

DRUGS (5)
  1. CORTICOSTEROIDS [Concomitant]
     Active Substance: CORTICOSTEROID NOS
  2. RITUXIMAB [Concomitant]
     Active Substance: RITUXIMAB
  3. VINCRISTINE [Concomitant]
     Active Substance: VINCRISTINE
  4. IGIVNEX [Suspect]
     Active Substance: HUMAN IMMUNOGLOBULIN G
     Indication: IMMUNE THROMBOCYTOPENIC PURPURA
     Route: 042
  5. ANTI-D [Concomitant]

REACTIONS (4)
  - Headache [None]
  - Vomiting [None]
  - Nausea [None]
  - Adverse drug reaction [None]
